FAERS Safety Report 25436036 (Version 2)
Quarter: 2025Q3

REPORT INFORMATION
  Report Type: Report from Study
  Country: CA (occurrence: CA)
  Receive Date: 20250613
  Receipt Date: 20250809
  Transmission Date: 20251021
  Serious: Yes (Death)
  Sender: ALEXION PHARMACEUTICALS
  Company Number: CA-AstraZeneca-CH-00860968A

PATIENT
  Age: 64 Year
  Sex: Female

DRUGS (1)
  1. OLAPARIB [Suspect]
     Active Substance: OLAPARIB
     Dosage: 300 MILLIGRAM, BID
     Dates: start: 20160720, end: 20250305

REACTIONS (1)
  - Acute erythroid leukaemia [Fatal]

NARRATIVE: CASE EVENT DATE: 20250430
